FAERS Safety Report 16669269 (Version 1)
Quarter: 2019Q3

REPORT INFORMATION
  Report Type: Spontaneous
  Country: US (occurrence: US)
  Receive Date: 20190805
  Receipt Date: 20190805
  Transmission Date: 20191004
  Serious: Yes (Other)
  Sender: FDA-Public Use
  Company Number: None

PATIENT
  Age: 28 Year
  Sex: Female
  Weight: 72 kg

DRUGS (2)
  1. TACROLIMUS 0.03% OINTMENT [Suspect]
     Active Substance: TACROLIMUS
     Indication: ECZEMA
     Route: 061
  2. TRIAMCINOLONE ACETONIDE CREAM USP, 1% [Suspect]
     Active Substance: TRIAMCINOLONE ACETONIDE
     Indication: ECZEMA
     Route: 061

REACTIONS (1)
  - Alopecia [None]

NARRATIVE: CASE EVENT DATE: 20171001
